FAERS Safety Report 10171468 (Version 4)
Quarter: 2014Q2

REPORT INFORMATION
  Report Type: Spontaneous
  Country: NO (occurrence: NO)
  Receive Date: 20140514
  Receipt Date: 20140612
  Transmission Date: 20141212
  Serious: Yes (Hospitalization, Other)
  Sender: FDA-Public Use
  Company Number: NO-JNJFOC-20140506376

PATIENT
  Age: 74 Year
  Sex: Male

DRUGS (2)
  1. REMICADE [Suspect]
     Indication: COLITIS MICROSCOPIC
     Route: 042
     Dates: start: 201401
  2. REMICADE [Suspect]
     Indication: COLITIS MICROSCOPIC
     Route: 042
     Dates: start: 20140203, end: 20140203

REACTIONS (10)
  - Dysarthria [Unknown]
  - Polyneuropathy [Unknown]
  - Adverse event [Unknown]
  - Rash [Unknown]
  - Dermatitis exfoliative [Unknown]
  - Facial pain [Unknown]
  - Demyelination [Unknown]
  - Pruritus [Unknown]
  - Erythema [Unknown]
  - Off label use [Unknown]
